FAERS Safety Report 23325701 (Version 1)
Quarter: 2023Q4

REPORT INFORMATION
  Report Type: Spontaneous
  Country: US (occurrence: US)
  Receive Date: 20231221
  Receipt Date: 20231221
  Transmission Date: 20240109
  Serious: Yes (Other)
  Sender: FDA-Public Use
  Company Number: US-AUROBINDO-AUR-APL-2023-079013

PATIENT
  Age: 71 Year
  Sex: Male

DRUGS (6)
  1. PREDNISONE [Suspect]
     Active Substance: PREDNISONE
     Indication: Ophthalmoplegia
     Dosage: 10 MILLIGRAM, DAILY
     Route: 065
  2. PREDNISONE [Suspect]
     Active Substance: PREDNISONE
     Indication: Myasthenia gravis
     Dosage: 60 MILLIGRAM, DAILY
     Route: 065
  3. PROPANTHELINE [Suspect]
     Active Substance: PROPANTHELINE
     Indication: Muscle spasms
     Dosage: UNK
  4. PROPANTHELINE [Suspect]
     Active Substance: PROPANTHELINE
     Indication: Gastrointestinal disorder
  5. PYRIDOSTIGMINE [Suspect]
     Active Substance: PYRIDOSTIGMINE
     Indication: Myasthenia gravis
     Dosage: 60 MILLIGRAM
     Route: 065
  6. PYRIDOSTIGMINE [Suspect]
     Active Substance: PYRIDOSTIGMINE
     Indication: Ophthalmoplegia
     Dosage: 60 MILLIGRAM, TWO TIMES A DAY
     Route: 065

REACTIONS (1)
  - Drug ineffective [Unknown]
